FAERS Safety Report 7346282-8 (Version None)
Quarter: 2011Q1

REPORT INFORMATION
  Report Type: 
  Country: None (occurrence: None)
  Receive Date: 20110311
  Receipt Date: 20110308
  Transmission Date: 20110831
  Serious: No
  Sender: FDA-Public Use
  Company Number: US-PFIZER INC-ENC200800173

PATIENT
  Age: 60 Year
  Sex: Female

DRUGS (5)
  1. ARGATROBAN [Suspect]
     Indication: HEPARIN-INDUCED THROMBOCYTOPENIA
     Dosage: 0.7 MCG/KG/MIN,FREQUENCY:  UNK
     Route: 042
     Dates: start: 20080821
  2. PARACETAMOL [Concomitant]
  3. PROPOFOL [Concomitant]
  4. FENTANYL [Concomitant]
  5. LANSOPRAZOLE [Concomitant]

REACTIONS (1)
  - COAGULATION TIME PROLONGED [None]
